FAERS Safety Report 7467099-X (Version None)
Quarter: 2011Q2

REPORT INFORMATION
  Report Type: 
  Country: None (occurrence: None)
  Receive Date: 20110509
  Receipt Date: 20101018
  Transmission Date: 20111010
  Serious: No
  Sender: FDA-Public Use
  Company Number: US-ALEXION-A201001325

PATIENT
  Sex: Female

DRUGS (12)
  1. SPIRONOLACTONE [Concomitant]
     Dosage: 100 MG, UNK
  2. FOLIC ACID [Concomitant]
     Dosage: 1 MG, QD
  3. LOVENOX [Concomitant]
     Dosage: 40 MG, UNK
  4. NEXIUM [Concomitant]
     Dosage: 40 MG, UNK
  5. WARFARIN SODIUM [Concomitant]
     Indication: ANTICOAGULANT THERAPY
     Dosage: 5 MG, UNK
  6. SOLIRIS [Suspect]
     Dosage: 900 MG, Q2W
     Route: 042
  7. TYLENOL (CAPLET) [Concomitant]
     Indication: PREMEDICATION
  8. SOLIRIS [Suspect]
     Indication: PAROXYSMAL NOCTURNAL HAEMOGLOBINURIA
     Dosage: UNK
     Route: 042
     Dates: start: 20100901
  9. HYDROCODONE BITARTRATE [Concomitant]
     Indication: PAIN
  10. PREDNISONE [Concomitant]
     Dosage: 5 MG X4
  11. FUROSEMIDE [Concomitant]
     Indication: FLUID RETENTION
     Dosage: 40 MG, UNK
  12. FERROUS SULFATE TAB [Concomitant]
     Dosage: 325 MG, UNK

REACTIONS (1)
  - PRURITUS [None]
